FAERS Safety Report 15983447 (Version 5)
Quarter: 2022Q3

REPORT INFORMATION
  Report Type: Other
  Country: CA (occurrence: None)
  Receive Date: 20190220
  Receipt Date: 20220912
  Transmission Date: 20221027
  Serious: Yes (Other)
  Sender: FDA-Public Use
  Company Number: CA-ROCHE-2187287

PATIENT
  Age: 35 Year
  Sex: Female

DRUGS (14)
  1. OCREVUS [Suspect]
     Active Substance: OCRELIZUMAB
     Indication: Primary progressive multiple sclerosis
     Dosage: 300 MG AT DAY 0 AND 14, THEN 600 MG EVERY 6 MONTH?LAST INFUSION: 15/SEP/2021 (600 MG)
     Route: 042
     Dates: start: 20180912
  2. OCREVUS [Suspect]
     Active Substance: OCRELIZUMAB
     Route: 042
     Dates: start: 20210915
  3. OCREVUS [Suspect]
     Active Substance: OCRELIZUMAB
     Route: 042
     Dates: start: 202203
  4. SOLU-MEDROL [Concomitant]
     Active Substance: METHYLPREDNISOLONE SODIUM SUCCINATE
     Route: 042
  5. VITAMIN C [Concomitant]
     Active Substance: ASCORBIC ACID
  6. DIETARY SUPPLEMENT [Concomitant]
     Active Substance: DIETARY SUPPLEMENT
  7. RUPATADINE FUMARATE [Concomitant]
     Active Substance: RUPATADINE FUMARATE
     Dosage: 10 MG TWICE PER DAY FOR 7 DAYS BEFORE OCREVUS
  8. SINGULAIR [Concomitant]
     Active Substance: MONTELUKAST SODIUM
     Dosage: 40 MG ONCE PER DAY FOR 7 DAYS BEFORE OCREVUS
  9. TYLENOL EXTRA STRENGTH [Concomitant]
     Active Substance: ACETAMINOPHEN
     Dosage: TOOK 2 LAST NIGHT
     Route: 048
     Dates: start: 20190907
  10. BENADRYL [Concomitant]
     Active Substance: DIPHENHYDRAMINE HYDROCHLORIDE
     Indication: Premedication
     Route: 048
  11. PREDNISONE [Concomitant]
     Active Substance: PREDNISONE
  12. BUDESONIDE [Concomitant]
     Active Substance: BUDESONIDE
  13. FORMOTEROL [Concomitant]
     Active Substance: FORMOTEROL
  14. FLUTICASONE FUROATE [Concomitant]
     Active Substance: FLUTICASONE FUROATE
     Route: 045

REACTIONS (28)
  - Tremor [Recovering/Resolving]
  - Nausea [Not Recovered/Not Resolved]
  - Pyrexia [Recovered/Resolved]
  - Limb discomfort [Not Recovered/Not Resolved]
  - Fall [Unknown]
  - Fatigue [Not Recovered/Not Resolved]
  - Hyperhidrosis [Unknown]
  - Infusion related reaction [Not Recovered/Not Resolved]
  - Gastric disorder [Unknown]
  - Infusion related reaction [Not Recovered/Not Resolved]
  - Cough [Not Recovered/Not Resolved]
  - Rash [Recovered/Resolved]
  - Bone contusion [Not Recovered/Not Resolved]
  - Fluid retention [Recovering/Resolving]
  - Photopsia [Recovered/Resolved]
  - Periorbital swelling [Recovered/Resolved]
  - Gastric infection [Unknown]
  - Migraine [Unknown]
  - Headache [Unknown]
  - Tongue disorder [Unknown]
  - Swelling face [Unknown]
  - Swelling [Unknown]
  - Malaise [Unknown]
  - Gait disturbance [Unknown]
  - Oropharyngeal pain [Recovered/Resolved]
  - Pyrexia [Not Recovered/Not Resolved]
  - Upper respiratory tract infection [Not Recovered/Not Resolved]
  - Vomiting [Unknown]

NARRATIVE: CASE EVENT DATE: 20180912
